FAERS Safety Report 11692587 (Version 2)
Quarter: 2015Q4

REPORT INFORMATION
  Report Type: Report from Study
  Country: IL (occurrence: IL)
  Receive Date: 20151103
  Receipt Date: 20151106
  Transmission Date: 20160304
  Serious: Yes (Hospitalization)
  Sender: FDA-Public Use
  Company Number: PHHY2015IL138503

PATIENT
  Age: 78 Year
  Sex: Female

DRUGS (1)
  1. SANDOSTATIN LAR DEPOT [Suspect]
     Active Substance: OCTREOTIDE ACETATE
     Indication: PANCREATIC NEUROENDOCRINE TUMOUR
     Dosage: 30 MG, 1Q3W
     Route: 030
     Dates: start: 20130703

REACTIONS (6)
  - Inappropriate schedule of drug administration [Unknown]
  - Transient ischaemic attack [Unknown]
  - Asthenia [Recovered/Resolved]
  - Arrhythmia [Unknown]
  - Dysarthria [Recovered/Resolved]
  - Limb discomfort [Recovered/Resolved]

NARRATIVE: CASE EVENT DATE: 20151009
